FAERS Safety Report 7588819-X (Version None)
Quarter: 2011Q3

REPORT INFORMATION
  Report Type: 
  Country: None (occurrence: None)
  Receive Date: 20110705
  Receipt Date: 20110624
  Transmission Date: 20111222
  Serious: Yes (Other)
  Sender: FDA-Public Use
  Company Number: FR-JNJFOC-20110608697

PATIENT
  Age: 78 Year
  Sex: Female

DRUGS (7)
  1. LERCANIDIPINE [Concomitant]
     Route: 065
     Dates: start: 20110513
  2. ACUPAN [Concomitant]
     Route: 065
     Dates: start: 20110513
  3. LOVENOX [Concomitant]
     Route: 065
     Dates: start: 20110513
  4. RENITEC (ENALAPRIL) [Concomitant]
     Route: 065
     Dates: start: 20110513
  5. ANTIHYPERTENSION MEDICATION [Concomitant]
     Route: 065
  6. TRAMADOL HCL [Concomitant]
     Route: 065
  7. DURAGESIC-100 [Suspect]
     Indication: PROCEDURAL PAIN
     Route: 062
     Dates: start: 20110601

REACTIONS (4)
  - OFF LABEL USE [None]
  - OEDEMA PERIPHERAL [None]
  - PAIN IN EXTREMITY [None]
  - SOMNOLENCE [None]
